FAERS Safety Report 6354103-5 (Version None)
Quarter: 2009Q3

REPORT INFORMATION
  Report Type: 
  Country: None (occurrence: None)
  Receive Date: 20090914
  Receipt Date: 20090908
  Transmission Date: 20100115
  Serious: Yes (Other)
  Sender: FDA-Public Use
  Company Number: PHHY2009FR38410

PATIENT
  Age: 78 Year
  Sex: Female

DRUGS (1)
  1. CIBADREX [Suspect]
     Dosage: UNK

REACTIONS (3)
  - LOCALISED OEDEMA [None]
  - RESPIRATORY DISORDER [None]
  - TONGUE OEDEMA [None]
